FAERS Safety Report 8044874-4 (Version None)
Quarter: 2012Q1

REPORT INFORMATION
  Report Type: 
  Country: None (occurrence: None)
  Receive Date: 20120113
  Receipt Date: 20120109
  Transmission Date: 20120608
  Serious: Yes (Hospitalization)
  Sender: FDA-Public Use
  Company Number: US-TEVA-269907USA

PATIENT
  Sex: Female
  Weight: 77.18 kg

DRUGS (2)
  1. PLAN B ONE-STEP [Suspect]
     Indication: POST COITAL CONTRACEPTION
     Dosage: 1.5 MILLIGRAM;
     Route: 048
     Dates: start: 20110217, end: 20110217
  2. ALBUTEROL [Concomitant]
     Indication: ASTHMA
     Route: 055
     Dates: start: 20010101

REACTIONS (10)
  - ABORTION MISSED [None]
  - PYREXIA [None]
  - NAUSEA [None]
  - MENSTRUATION IRREGULAR [None]
  - DRUG INEFFECTIVE [None]
  - STREPTOCOCCUS TEST POSITIVE [None]
  - VAGINITIS BACTERIAL [None]
  - FATIGUE [None]
  - PREGNANCY AFTER POST COITAL CONTRACEPTION [None]
  - PELVIC PAIN [None]
